FAERS Safety Report 13992872 (Version 1)
Quarter: 2017Q3

REPORT INFORMATION
  Report Type: Report from Study
  Country: None (occurrence: ES)
  Receive Date: 20170920
  Receipt Date: 20170920
  Transmission Date: 20171128
  Serious: Yes (Hospitalization)
  Sender: FDA-Public Use
  Company Number: ES-ABBVIE-17P-144-2082124-00

PATIENT
  Age: 56 Year
  Sex: Male

DRUGS (3)
  1. EXFORGE [Concomitant]
     Active Substance: AMLODIPINE BESYLATE\VALSARTAN
     Dosage: 10/160/12.5 MG
     Route: 048
     Dates: start: 20170705
  2. HUMIRA [Suspect]
     Active Substance: ADALIMUMAB
     Indication: COLITIS ULCERATIVE
     Route: 058
     Dates: start: 20140905, end: 201703
  3. EXFORGE [Concomitant]
     Active Substance: AMLODIPINE BESYLATE\VALSARTAN
     Indication: HYPERTENSION
     Dosage: 10/160/25 MG
     Route: 048
     Dates: start: 20140616, end: 20170704

REACTIONS (1)
  - Proctectomy [Recovered/Resolved]

NARRATIVE: CASE EVENT DATE: 20170329
